FAERS Safety Report 18219337 (Version 1)
Quarter: 2020Q3

REPORT INFORMATION
  Report Type: Spontaneous
  Country: US (occurrence: US)
  Receive Date: 20200901
  Receipt Date: 20200901
  Transmission Date: 20201103
  Serious: Yes (Other)
  Sender: FDA-Public Use
  Company Number: NVSC2020US238064

PATIENT
  Sex: Male

DRUGS (2)
  1. TYKERB [Suspect]
     Active Substance: LAPATINIB DITOSYLATE
     Indication: SALIVARY GLAND CANCER
     Dosage: 1250 MG, QD
     Route: 048
     Dates: start: 202008
  2. TYKERB [Suspect]
     Active Substance: LAPATINIB DITOSYLATE
     Dosage: 1000 MG, QD
     Route: 048
     Dates: start: 202008

REACTIONS (3)
  - Product use in unapproved indication [Unknown]
  - Febrile neutropenia [Unknown]
  - Rash [Unknown]
